FAERS Safety Report 7789486-2 (Version None)
Quarter: 2011Q3

REPORT INFORMATION
  Report Type: 
  Country: None (occurrence: None)
  Receive Date: 20110930
  Receipt Date: 20110920
  Transmission Date: 20111222
  Serious: Yes (Hospitalization)
  Sender: FDA-Public Use
  Company Number: RO-NOVOPROD-335505

PATIENT
  Sex: Male
  Weight: 90 kg

DRUGS (5)
  1. BLINDED LIRAGLUTIDE FLEXPEN [Suspect]
     Indication: TYPE 2 DIABETES MELLITUS
  2. BLINDED UNKNOWN [Suspect]
     Indication: TYPE 2 DIABETES MELLITUS
  3. BLINDED PLACEBO RUN IN [Suspect]
     Indication: TYPE 2 DIABETES MELLITUS
  4. BLINDED NO DRUG GIVEN [Suspect]
     Indication: TYPE 2 DIABETES MELLITUS
  5. BLINDED PLACEBO FLEXPEN [Suspect]
     Indication: TYPE 2 DIABETES MELLITUS

REACTIONS (1)
  - GASTRITIS [None]
